FAERS Safety Report 10013746 (Version 1)
Quarter: 2014Q1

REPORT INFORMATION
  Report Type: Report from Study
  Country: BR (occurrence: BR)
  Receive Date: 20140316
  Receipt Date: 20140316
  Transmission Date: 20141002
  Serious: Yes (Death, Hospitalization, Other)
  Sender: FDA-Public Use
  Company Number: BR-BAYER-2014-035285

PATIENT
  Age: 56 Year
  Sex: Male

DRUGS (2)
  1. NEXAVAR [Suspect]
     Indication: HEPATIC CANCER
     Dosage: 400 MG, BID
     Route: 048
     Dates: start: 20130808, end: 201309
  2. NEXAVAR [Suspect]
     Indication: HEPATIC CANCER
     Dosage: 400 MG, QD
     Route: 048
     Dates: start: 201309, end: 20131115

REACTIONS (9)
  - Ascites [Not Recovered/Not Resolved]
  - Emotional disorder [Not Recovered/Not Resolved]
  - Abdominal pain [Not Recovered/Not Resolved]
  - Pain in extremity [Not Recovered/Not Resolved]
  - Gait disturbance [Not Recovered/Not Resolved]
  - Metastases to gastrointestinal tract [Not Recovered/Not Resolved]
  - Hepatic cancer [Fatal]
  - Hospitalisation [None]
  - Metastases to lung [Not Recovered/Not Resolved]
